FAERS Safety Report 9170181 (Version 1)
Quarter: 2013Q1

REPORT INFORMATION
  Report Type: Spontaneous
  Country: NL (occurrence: NL)
  Receive Date: 20130319
  Receipt Date: 20130319
  Transmission Date: 20140127
  Serious: Yes (Other)
  Sender: FDA-Public Use
  Company Number: PHHY2012NL080794

PATIENT
  Sex: 0

DRUGS (3)
  1. ZOMETA [Suspect]
     Dosage: 4 MG/ 100 ML
     Route: 042
  2. DIURETICS [Concomitant]
  3. HYDROCHLOROTHIAZIDE [Concomitant]
     Dosage: 12.5 MG, UNK
     Dates: start: 20120816, end: 20120913

REACTIONS (1)
  - Hyponatraemia [Recovered/Resolved]
